FAERS Safety Report 15551185 (Version 1)
Quarter: 2018Q4

REPORT INFORMATION
  Report Type: Spontaneous
  Country: US (occurrence: US)
  Receive Date: 20181025
  Receipt Date: 20181025
  Transmission Date: 20190205
  Serious: No
  Sender: FDA-Public Use
  Company Number: None

PATIENT
  Age: 94 Year
  Sex: Female
  Weight: 54.9 kg

DRUGS (1)
  1. THERMACARE ULTRA [Suspect]
     Active Substance: CAMPHOR (SYNTHETIC)\CAPSICUM OLEORESIN\MENTHOL\METHYL SALICYLATE
     Indication: PROCEDURAL PAIN
     Dosage: ?          OTHER FREQUENCY:1 TIME;?
     Route: 061

REACTIONS (1)
  - Burning sensation [None]

NARRATIVE: CASE EVENT DATE: 20180928
